FAERS Safety Report 8118670-3 (Version None)
Quarter: 2012Q1

REPORT INFORMATION
  Report Type: 
  Country: None (occurrence: None)
  Receive Date: 20120202
  Receipt Date: 20120131
  Transmission Date: 20120608
  Serious: Yes (Hospitalization, Other)
  Sender: FDA-Public Use
  Company Number: 2010SP041962

PATIENT
  Age: 30 Year
  Sex: Female
  Weight: 65.7716 kg

DRUGS (7)
  1. VICODIN [Concomitant]
  2. NUVARING [Suspect]
     Indication: MENSTRUATION IRREGULAR
     Dates: start: 20060406, end: 20080731
  3. NUVARING [Suspect]
     Indication: DYSFUNCTIONAL UTERINE BLEEDING
     Dates: start: 20060406, end: 20080731
  4. NUVARING [Suspect]
     Indication: DYSMENORRHOEA
     Dates: start: 20060406, end: 20080731
  5. NUVARING [Suspect]
     Indication: CONTRACEPTION
     Dates: start: 20060406, end: 20080731
  6. ANAPROX [Concomitant]
  7. NAPROSYN [Suspect]
     Indication: DYSMENORRHOEA
     Dates: start: 20070101

REACTIONS (28)
  - HEADACHE [None]
  - POSTICTAL STATE [None]
  - PROTHROMBIN LEVEL INCREASED [None]
  - DRUG ADMINISTRATION ERROR [None]
  - NAUSEA [None]
  - OTITIS MEDIA ACUTE [None]
  - STAPHYLOCOCCAL INFECTION [None]
  - TONSILLAR DISORDER [None]
  - GRAND MAL CONVULSION [None]
  - COUGH [None]
  - ABDOMINAL PAIN [None]
  - THYROID DISORDER [None]
  - CONSTIPATION [None]
  - ENCEPHALOMALACIA [None]
  - MIGRAINE [None]
  - FALL [None]
  - VOMITING [None]
  - VARICELLA [None]
  - DRUG HYPERSENSITIVITY [None]
  - DRUG EFFECT DECREASED [None]
  - SUPERIOR SAGITTAL SINUS THROMBOSIS [None]
  - ABDOMINAL DISCOMFORT [None]
  - CENTRAL NERVOUS SYSTEM LESION [None]
  - GASTROENTERITIS VIRAL [None]
  - FOOT FRACTURE [None]
  - CEREBRAL HAEMOSIDERIN DEPOSITION [None]
  - HAEMORRHAGIC CEREBRAL INFARCTION [None]
  - ILEUS [None]
